FAERS Safety Report 6231819-2 (Version None)
Quarter: 2009Q2

REPORT INFORMATION
  Report Type: 
  Country: None (occurrence: None)
  Receive Date: 20090611
  Receipt Date: 20090611
  Transmission Date: 20091009
  Serious: No
  Sender: FDA-Public Use
  Company Number: None

PATIENT
  Age: 61 Year
  Sex: Male
  Weight: 91.173 kg

DRUGS (2)
  1. METHYLPHENIDATE HCL [Suspect]
     Indication: MAJOR DEPRESSION
     Dosage: 90MG PER DAY PO
     Route: 048
  2. METHYLPHENIDATE HCL [Suspect]
     Indication: MAJOR DEPRESSION
     Dosage: 90MG PER DAY PO
     Route: 048

REACTIONS (5)
  - APATHY [None]
  - IRRITABILITY [None]
  - MOOD ALTERED [None]
  - PRODUCT SUBSTITUTION ISSUE [None]
  - PSYCHOMOTOR RETARDATION [None]
